FAERS Safety Report 12535373 (Version 2)
Quarter: 2016Q3

REPORT INFORMATION
  Report Type: Spontaneous
  Country: GB (occurrence: GB)
  Receive Date: 20160707
  Receipt Date: 20160721
  Transmission Date: 20161109
  Serious: Yes (Other)
  Sender: FDA-Public Use
  Company Number: GB-AUROBINDO-AUR-APL-2016-08548

PATIENT
  Age: 34 Year
  Sex: Female

DRUGS (4)
  1. PAROXETINE. [Suspect]
     Active Substance: PAROXETINE
     Indication: PRODUCT USED FOR UNKNOWN INDICATION
     Dosage: UNK
     Route: 065
     Dates: start: 19980507, end: 200101
  2. PAROXETINE. [Suspect]
     Active Substance: PAROXETINE
     Dosage: 20 MG, QD
     Route: 065
     Dates: start: 19990827
  3. PAROXETINE. [Suspect]
     Active Substance: PAROXETINE
     Dosage: 30 MG, QD
     Route: 065
     Dates: start: 19990603, end: 20001127
  4. CITALOPRAM [Concomitant]
     Active Substance: CITALOPRAM HYDROBROMIDE
     Indication: PRODUCT USED FOR UNKNOWN INDICATION
     Dosage: UNK
     Route: 065

REACTIONS (14)
  - Panic attack [Unknown]
  - Anxiety [Unknown]
  - Headache [Unknown]
  - Paraesthesia [Unknown]
  - Depression [Unknown]
  - Drug withdrawal syndrome [Unknown]
  - Psychiatric symptom [Unknown]
  - Fear [Unknown]
  - Drug dependence [Unknown]
  - Dizziness [Unknown]
  - Self esteem decreased [Unknown]
  - Insomnia [Unknown]
  - Dissociation [Unknown]
  - Ill-defined disorder [Unknown]

NARRATIVE: CASE EVENT DATE: 200010
